FAERS Safety Report 5705309-7 (Version None)
Quarter: 2008Q2

REPORT INFORMATION
  Report Type: 
  Country: None (occurrence: None)
  Receive Date: 20080415
  Receipt Date: 20080402
  Transmission Date: 20081010
  Serious: Yes (Death, Hospitalization, Other)
  Sender: FDA-Public Use
  Company Number: GB-RANBAXY-2007RR-09505

PATIENT

DRUGS (3)
  1. IBUPROFEN TABLETS BP 200MG [Suspect]
     Route: 065
  2. ACETAMINOPHEN [Suspect]
     Route: 065
  3. ACETYLSALICYLIC ACID SRT [Concomitant]

REACTIONS (8)
  - ACUTE HEPATIC FAILURE [None]
  - COMPLETED SUICIDE [None]
  - HEPATIC NECROSIS [None]
  - LOSS OF CONSCIOUSNESS [None]
  - NEPHRITIS INTERSTITIAL [None]
  - OVERDOSE [None]
  - PNEUMONIA ASPIRATION [None]
  - RENAL FAILURE ACUTE [None]
